FAERS Safety Report 24144741 (Version 1)
Quarter: 2024Q3

REPORT INFORMATION
  Report Type: Report from Study
  Country: US (occurrence: US)
  Receive Date: 20240728
  Receipt Date: 20240728
  Transmission Date: 20241017
  Serious: Yes (Hospitalization)
  Sender: ABBVIE
  Company Number: US-ABBVIE-5853932

PATIENT
  Age: 63 Year
  Sex: Female

DRUGS (1)
  1. VENCLEXTA [Suspect]
     Active Substance: VENETOCLAX
     Indication: Chronic lymphocytic leukaemia
     Dosage: TIME INTERVAL: 0.33333333 DAYS: TAKE 3 TABLETS ORALLY EVERY OTHER DAY ALTERNATING 2 TABLETS A DAY
     Route: 048
     Dates: start: 20230214

REACTIONS (2)
  - Wound [Unknown]
  - Fistula [Unknown]

NARRATIVE: CASE EVENT DATE: 20240719
